FAERS Safety Report 5398806-8 (Version None)
Quarter: 2007Q3

REPORT INFORMATION
  Report Type: 
  Country: None (occurrence: None)
  Receive Date: 20070725
  Receipt Date: 20070725
  Transmission Date: 20080115
  Serious: Yes (Hospitalization)
  Sender: FDA-Public Use
  Company Number: None

PATIENT
  Sex: Female
  Weight: 100 kg

DRUGS (2)
  1. GLEEVEC [Suspect]
     Indication: BREAST CANCER METASTATIC
     Dosage: 400 MG BID PO
     Route: 048
     Dates: start: 20070508, end: 20070613
  2. TAXOL [Suspect]
     Dosage: 100 MG/M2 IV Q 3 OF 4 WEEKS
     Dates: start: 20070510, end: 20070607

REACTIONS (1)
  - DISEASE PROGRESSION [None]
